FAERS Safety Report 17029641 (Version 2)
Quarter: 2020Q1

REPORT INFORMATION
  Report Type: Report from Study
  Country: CO (occurrence: CO)
  Receive Date: 20191114
  Receipt Date: 20200227
  Transmission Date: 20200409
  Serious: Yes (Hospitalization, Other)
  Sender: FDA-Public Use
  Company Number: CO-ROCHE-2422042

PATIENT
  Sex: Female

DRUGS (2)
  1. CELLCEPT [Suspect]
     Active Substance: MYCOPHENOLATE MOFETIL\MYCOPHENOLATE MOFETIL HYDROCHLORIDE
     Indication: PRODUCT USED FOR UNKNOWN INDICATION
     Route: 065
  2. METHYLPREDNISOLONE. [Concomitant]
     Active Substance: METHYLPREDNISOLONE

REACTIONS (9)
  - Nephropathy [Unknown]
  - Visual impairment [Unknown]
  - Renal disorder [Unknown]
  - Transaminases increased [Unknown]
  - Viral test positive [Unknown]
  - Cataract [Unknown]
  - Renal artery stenosis [Unknown]
  - Transplant rejection [Unknown]
  - Blood creatinine increased [Unknown]
